FAERS Safety Report 7492381-X (Version None)
Quarter: 2011Q2

REPORT INFORMATION
  Report Type: 
  Country: None (occurrence: None)
  Receive Date: 20110519
  Receipt Date: 20110513
  Transmission Date: 20111010
  Serious: Yes (Hospitalization, Disabling)
  Sender: FDA-Public Use
  Company Number: FR-PFIZER INC-2006138906

PATIENT
  Age: 27 Year
  Sex: Female
  Weight: 51 kg

DRUGS (4)
  1. MEDROL [Interacting]
     Indication: PYELONEPHRITIS
     Dosage: 5 EVERY 1 DAYS
     Route: 048
     Dates: start: 20060607, end: 20060611
  2. CIPROFLOXACIN [Interacting]
     Indication: PYELONEPHRITIS
     Route: 048
     Dates: start: 20060601, end: 20060621
  3. AMOXICILLIN [Concomitant]
     Route: 048
     Dates: start: 20060621, end: 20060627
  4. DIPROSONE [Suspect]

REACTIONS (6)
  - ERECTILE DYSFUNCTION [None]
  - ADRENAL INSUFFICIENCY [None]
  - MYALGIA [None]
  - GAIT DISTURBANCE [None]
  - DRUG INTERACTION [None]
  - TOXICITY TO VARIOUS AGENTS [None]
